FAERS Safety Report 19775693 (Version 2)
Quarter: 2021Q3

REPORT INFORMATION
  Report Type: Spontaneous
  Country: US (occurrence: US)
  Receive Date: 20210901
  Receipt Date: 20210907
  Transmission Date: 20211014
  Serious: Yes (Hospitalization, Other)
  Sender: FDA-Public Use
  Company Number: US-SUN PHARMACEUTICAL INDUSTRIES LTD-2021R1-309395

PATIENT
  Age: 8 Decade

DRUGS (1)
  1. DIGOXIN. [Suspect]
     Active Substance: DIGOXIN
     Indication: ATRIAL FIBRILLATION
     Dosage: 250 MICROGRAM, UNK
     Route: 065

REACTIONS (3)
  - Acute respiratory failure [Unknown]
  - Tachyarrhythmia [Recovered/Resolved]
  - Septic shock [Recovered/Resolved]
